FAERS Safety Report 6177747-2 (Version None)
Quarter: 2009Q2

REPORT INFORMATION
  Report Type: 
  Country: None (occurrence: None)
  Receive Date: 20090504
  Receipt Date: 20090423
  Transmission Date: 20091009
  Serious: Yes (Other)
  Sender: FDA-Public Use
  Company Number: GB-PFIZER INC-2009202405

PATIENT

DRUGS (1)
  1. CHAMPIX [Suspect]
     Dosage: UNK
     Route: 048

REACTIONS (5)
  - FEELING ABNORMAL [None]
  - HALLUCINATION [None]
  - NIGHT SWEATS [None]
  - OEDEMA PERIPHERAL [None]
  - TREMOR [None]
